FAERS Safety Report 18069863 (Version 1)
Quarter: 2020Q3

REPORT INFORMATION
  Report Type: Spontaneous
  Country: GB (occurrence: GB)
  Receive Date: 20200727
  Receipt Date: 20200727
  Transmission Date: 20201103
  Serious: Yes (Other)
  Sender: FDA-Public Use
  Company Number: GB-AUROBINDO-AUR-APL-2020-036462

PATIENT
  Age: 75 Year
  Sex: Female
  Weight: 48.07 kg

DRUGS (2)
  1. MOXONIDINE [Suspect]
     Active Substance: MOXONIDINE
     Indication: HYPERTENSION
     Dosage: 4 MILLIGRAM
     Route: 048
     Dates: start: 20180707, end: 20200520
  2. BISOPROLOL [Suspect]
     Active Substance: BISOPROLOL
     Indication: HYPERTENSION
     Dosage: 2 MILLIGRAM
     Route: 048
     Dates: start: 20180707, end: 20200520

REACTIONS (6)
  - Pruritus [Recovering/Resolving]
  - Eye pruritus [Recovering/Resolving]
  - Neurodermatitis [Recovering/Resolving]
  - Eye discharge [Recovering/Resolving]
  - Skin haemorrhage [Recovering/Resolving]
  - Blood sodium decreased [Not Recovered/Not Resolved]

NARRATIVE: CASE EVENT DATE: 20181115
